FAERS Safety Report 24568409 (Version 2)
Quarter: 2024Q4

REPORT INFORMATION
  Report Type: Report from Study
  Country: PT (occurrence: PT)
  Receive Date: 20241031
  Receipt Date: 20241115
  Transmission Date: 20250114
  Serious: Yes (Other)
  Sender: ABBVIE
  Company Number: PT-ABBVIE-5981719

PATIENT
  Age: 62 Year
  Sex: Female

DRUGS (9)
  1. CARBIDOPA\LEVODOPA [Suspect]
     Active Substance: CARBIDOPA\LEVODOPA
     Indication: Parkinson^s disease
     Dosage: 240 MG + 12 MG, LAST ADMIN DATE: 2024, LOAD1;BASE0.62;HIGH0.73;LOW0.3
     Route: 058
     Dates: start: 20240416
  2. CARBIDOPA\LEVODOPA [Suspect]
     Active Substance: CARBIDOPA\LEVODOPA
     Dosage: 240 MG + 12 MG, LOAD1;BASE0.5;HIGHNA;LOW0.4;EXTRA0.1
     Route: 058
     Dates: start: 2024
  3. MIRTAZAPINE [Concomitant]
     Active Substance: MIRTAZAPINE
     Indication: Product used for unknown indication
     Dosage: 1 TABLET, BEFORE DUODOPA
  4. Parkadina (amantadine) [Concomitant]
     Indication: Product used for unknown indication
     Dosage: TIME INTERVAL: 0.33333333 DAYS: BEFORE DUODOPA
  5. QUETIAPINE [Concomitant]
     Active Substance: QUETIAPINE
     Indication: Product used for unknown indication
     Dosage: BEFORE DUODOPA
  6. XADAGO [Concomitant]
     Active Substance: SAFINAMIDE MESYLATE
     Indication: Product used for unknown indication
     Dosage: BEFORE DUODOPA
  7. RIVASTIGMINE [Concomitant]
     Active Substance: RIVASTIGMINE
     Indication: Product used for unknown indication
     Dosage: BEFORE DUODOPA
     Route: 062
  8. VENLAFAXINE [Concomitant]
     Active Substance: VENLAFAXINE HYDROCHLORIDE
     Indication: Product used for unknown indication
     Dosage: BEFORE DUODOPA
  9. RIVOTRIL [Concomitant]
     Active Substance: CLONAZEPAM
     Indication: Product used for unknown indication
     Dosage: 1 TABLET, BEFORE DUODOPA

REACTIONS (1)
  - Puncture site inflammation [Recovering/Resolving]

NARRATIVE: CASE EVENT DATE: 20241024
